FAERS Safety Report 6232864-3 (Version None)
Quarter: 2009Q2

REPORT INFORMATION
  Report Type: 
  Country: None (occurrence: None)
  Receive Date: 20090617
  Receipt Date: 20090203
  Transmission Date: 20091009
  Serious: No
  Sender: FDA-Public Use
  Company Number: US-ASTRAZENECA-2009UW03195

PATIENT
  Sex: Female

DRUGS (1)
  1. FASLODEX [Suspect]
     Dosage: UNKNOWN
     Route: 030

REACTIONS (1)
  - LABORATORY TEST ABNORMAL [None]
